FAERS Safety Report 6304672-6 (Version None)
Quarter: 2009Q3

REPORT INFORMATION
  Report Type: 
  Country: None (occurrence: None)
  Receive Date: 20090806
  Receipt Date: 20090723
  Transmission Date: 20100115
  Serious: Yes (Hospitalization)
  Sender: FDA-Public Use
  Company Number: 2009-GWUS-0495

PATIENT
  Age: 70 Year
  Sex: Male

DRUGS (3)
  1. ALDARA [Suspect]
     Indication: SKIN CANCER
     Dosage: 3XW - TOPICAL
     Route: 061
     Dates: start: 20090617, end: 20090712
  2. HYROCHORITHIAZIDE/TRIAMTERENE (DYAZIDE) [Concomitant]
  3. PRAZSOIN HCL [Concomitant]

REACTIONS (14)
  - APPLICATION SITE DISCOLOURATION [None]
  - APPLICATION SITE ERYTHEMA [None]
  - APPLICATION SITE EXFOLIATION [None]
  - APPLICATION SITE REACTION [None]
  - ARTHRITIS [None]
  - COUGH [None]
  - DRY SKIN [None]
  - ERYTHEMA [None]
  - FAECES DISCOLOURED [None]
  - FATIGUE [None]
  - INFLUENZA LIKE ILLNESS [None]
  - OEDEMA PERIPHERAL [None]
  - PAIN [None]
  - PNEUMONIA [None]
